FAERS Safety Report 24159087 (Version 2)
Quarter: 2025Q1

REPORT INFORMATION
  Report Type: Report from Study
  Country: US (occurrence: US)
  Receive Date: 20240731
  Receipt Date: 20250205
  Transmission Date: 20250409
  Serious: No
  Sender: AURINIA PHARMACEUTICALS
  Company Number: US-AURINIA PHARMACEUTICALS INC.-AUR-006211

PATIENT
  Sex: Female

DRUGS (5)
  1. LUPKYNIS [Suspect]
     Active Substance: VOCLOSPORIN
     Indication: Lupus nephritis
     Dosage: 23.7 MILLIGRAM, BID
     Route: 048
     Dates: start: 20240603
  2. LUPKYNIS [Suspect]
     Active Substance: VOCLOSPORIN
     Dosage: 23.7 MILLIGRAM, BID
     Route: 048
     Dates: start: 20240705
  3. PRILOSEC [Concomitant]
     Active Substance: OMEPRAZOLE MAGNESIUM
     Indication: Product used for unknown indication
  4. VITAMIN C [Concomitant]
     Active Substance: ASCORBIC ACID
     Indication: Product used for unknown indication
  5. TUMS [Concomitant]
     Active Substance: CALCIUM CARBONATE
     Indication: Product used for unknown indication

REACTIONS (8)
  - Lymphatic insufficiency [Unknown]
  - Abdominal distension [Unknown]
  - Abdominal discomfort [Unknown]
  - Oedema [Unknown]
  - Flatulence [Unknown]
  - Fatigue [Not Recovered/Not Resolved]
  - Product odour abnormal [Unknown]
  - Product dose omission issue [Unknown]
